FAERS Safety Report 15710668 (Version 1)
Quarter: 2018Q4

REPORT INFORMATION
  Report Type: Spontaneous
  Country: IT (occurrence: IT)
  Receive Date: 20181211
  Receipt Date: 20181211
  Transmission Date: 20190205
  Serious: Yes (Other)
  Sender: FDA-Public Use
  Company Number: IT-JNJFOC-20181204228

PATIENT
  Age: 21 Year
  Sex: Female
  Weight: 77 kg

DRUGS (4)
  1. RISPERDAL [Suspect]
     Active Substance: RISPERIDONE
     Indication: PRODUCT USED FOR UNKNOWN INDICATION
     Route: 048
  2. LATUDA [Suspect]
     Active Substance: LURASIDONE HYDROCHLORIDE
     Indication: INTENTIONAL SELF-INJURY
     Dosage: TOOK 42 TABLETS.
     Route: 048
     Dates: start: 20181203, end: 20181203
  3. RISPERDAL [Suspect]
     Active Substance: RISPERIDONE
     Indication: PRODUCT USED FOR UNKNOWN INDICATION
     Dosage: TOOK 38 TABLETS.
     Route: 048
     Dates: start: 20181203, end: 20181203
  4. EN [Suspect]
     Active Substance: DELORAZEPAM
     Indication: INTENTIONAL SELF-INJURY
     Dosage: 2 VIALS ADMINISTERED.
     Route: 048
     Dates: start: 20181203, end: 20181203

REACTIONS (3)
  - Sluggishness [Unknown]
  - Intentional self-injury [Unknown]
  - Intentional overdose [Unknown]

NARRATIVE: CASE EVENT DATE: 20181203
